FAERS Safety Report 10042689 (Version 1)
Quarter: 2014Q1

REPORT INFORMATION
  Report Type: Spontaneous
  Country: GB (occurrence: GB)
  Receive Date: 20140327
  Receipt Date: 20140327
  Transmission Date: 20141002
  Serious: Yes (Hospitalization, Disabling)
  Sender: FDA-Public Use
  Company Number: GB-MYLANLABS-2014S1006289

PATIENT
  Age: 37 Year
  Sex: Male

DRUGS (4)
  1. METHADONE [Suspect]
     Dosage: 30ML
     Route: 048
  2. METHADONE [Suspect]
     Dosage: 20ML
     Route: 048
  3. DIAZEPAM [Suspect]
     Dosage: 150MG
     Route: 048
  4. FLUOXETINE [Concomitant]
     Route: 065

REACTIONS (7)
  - Encephalitis toxic [Not Recovered/Not Resolved]
  - Hypoxia [Unknown]
  - Tachycardia [Unknown]
  - Hypotension [Unknown]
  - Renal impairment [Unknown]
  - Hyperkalaemia [Unknown]
  - Hypoglycaemia [Unknown]
